FAERS Safety Report 5536245-7 (Version None)
Quarter: 2007Q4

REPORT INFORMATION
  Report Type: 
  Country: None (occurrence: None)
  Receive Date: 20071206
  Receipt Date: 20071129
  Transmission Date: 20080405
  Serious: Yes (Death, Hospitalization)
  Sender: FDA-Public Use
  Company Number: US-ROXANE LABORATORIES, INC-2007-DE-07037GD

PATIENT
  Age: 73 Year
  Sex: Male
  Weight: 68 kg

DRUGS (10)
  1. ASCORBIC ACID [Suspect]
  2. CALCIUM CARBONATE [Suspect]
     Route: 048
  3. LASIX [Suspect]
  4. LISINOPRIL [Suspect]
  5. VITAMIN A [Suspect]
  6. VITAMIN D [Suspect]
  7. LEVOTHYROXINE SODIUM [Concomitant]
  8. MAGNESIUM OXIDE [Concomitant]
  9. NIACIN [Concomitant]
  10. MULTI-VITAMIN [Concomitant]

REACTIONS (5)
  - CARDIAC DISORDER [None]
  - HYPERCALCAEMIA [None]
  - HYPEROXALURIA [None]
  - RENAL FAILURE CHRONIC [None]
  - TUBULOINTERSTITIAL NEPHRITIS [None]
